FAERS Safety Report 12902383 (Version 1)
Quarter: 2016Q4

REPORT INFORMATION
  Report Type: Spontaneous
  Country: US (occurrence: US)
  Receive Date: 20161031
  Receipt Date: 20161031
  Transmission Date: 20170207
  Serious: Yes (Disabling)
  Sender: FDA-Public Use
  Company Number: None

PATIENT
  Age: 27 Year
  Sex: Female
  Weight: 62.1 kg

DRUGS (2)
  1. PEPTO-BISMOL [Suspect]
     Active Substance: BISMUTH SUBSALICYLATE
     Indication: HYPERPHAGIA
     Dates: start: 20161021, end: 20161023
  2. NUVARING [Concomitant]
     Active Substance: ETHINYL ESTRADIOL\ETONOGESTREL

REACTIONS (7)
  - Diarrhoea [None]
  - Fatigue [None]
  - Confusional state [None]
  - Vomiting [None]
  - Chills [None]
  - Nausea [None]
  - Pyrexia [None]

NARRATIVE: CASE EVENT DATE: 20161023
